FAERS Safety Report 4900099-X (Version None)
Quarter: 2006Q1

REPORT INFORMATION
  Report Type: 
  Country: None (occurrence: None)
  Receive Date: 20060131
  Receipt Date: 20060119
  Transmission Date: 20060701
  Serious: Yes (Hospitalization)
  Sender: FDA-Public Use
  Company Number: US-2005-026473

PATIENT
  Age: 82 Year
  Sex: Male
  Weight: 83 kg

DRUGS (7)
  1. LEUKINE [Suspect]
     Indication: MYELODYSPLASTIC SYNDROME
     Dosage: 500 UG, 1 DOSE, SUBCUTANEOUS
     Route: 058
     Dates: start: 20051207, end: 20051207
  2. AZACITIDINE (VIDAZA) (AZACITIDINE) [Concomitant]
  3. PROPAFENONE HCL [Concomitant]
  4. TOPROL-XL [Concomitant]
  5. MAG-OX (MAGNESIUM OXIDE) [Concomitant]
  6. LANOXIN [Concomitant]
  7. NORVASC [Concomitant]

REACTIONS (8)
  - ACTIVATED PARTIAL THROMBOPLASTIN TIME PROLONGED [None]
  - HAEMOPTYSIS [None]
  - HYPOTENSION [None]
  - HYPOXIA [None]
  - INTERNATIONAL NORMALISED RATIO INCREASED [None]
  - PROTHROMBIN TIME PROLONGED [None]
  - PULMONARY ALVEOLAR HAEMORRHAGE [None]
  - WHITE BLOOD CELL COUNT DECREASED [None]
